FAERS Safety Report 12206870 (Version 1)
Quarter: 2016Q1

REPORT INFORMATION
  Report Type: Report from Study
  Country: BR (occurrence: BR)
  Receive Date: 20160324
  Receipt Date: 20160324
  Transmission Date: 20160526
  Serious: Yes (Hospitalization, Other)
  Sender: FDA-Public Use
  Company Number: PHHY2014BR128263

PATIENT
  Sex: Male
  Weight: 92 kg

DRUGS (3)
  1. BENEUM [Concomitant]
     Indication: EYE PAIN
     Dosage: 300 MG, 5QD
     Route: 065
     Dates: start: 201404
  2. GILENYA [Suspect]
     Active Substance: FINGOLIMOD HYDROCHLORIDE
     Indication: MULTIPLE SCLEROSIS
     Dosage: 0.5 MG, QD
     Route: 048
     Dates: start: 20140616
  3. DRAMIN B6 [Concomitant]
     Indication: NAUSEA
     Dosage: 50 MG, TID
     Route: 065
     Dates: start: 201408

REACTIONS (14)
  - Weight decreased [Unknown]
  - Motor dysfunction [Unknown]
  - Central nervous system lesion [Unknown]
  - Balance disorder [Recovered/Resolved]
  - Gait disturbance [Unknown]
  - Decreased appetite [Unknown]
  - Multiple sclerosis relapse [Unknown]
  - Nausea [Recovering/Resolving]
  - Back pain [Unknown]
  - Paraesthesia [Unknown]
  - Abdominal pain upper [Recovering/Resolving]
  - Strabismus [Unknown]
  - Vomiting [Recovered/Resolved]
  - Dizziness [Recovered/Resolved]
